FAERS Safety Report 25064567 (Version 1)
Quarter: 2025Q1

REPORT INFORMATION
  Report Type: Spontaneous
  Country: BA (occurrence: BA)
  Receive Date: 20250311
  Receipt Date: 20250311
  Transmission Date: 20250409
  Serious: Yes (Other)
  Sender: NOVARTIS
  Company Number: BA-002147023-NVSC2025BA037042

PATIENT
  Age: 52 Year
  Sex: Female

DRUGS (2)
  1. KISQALI [Suspect]
     Active Substance: RIBOCICLIB
     Indication: Product used for unknown indication
     Dosage: 200 MG, TID (3X1)
     Route: 065
     Dates: start: 201805
  2. EXEMESTANE [Concomitant]
     Active Substance: EXEMESTANE
     Indication: Product used for unknown indication
     Dosage: 25 MG, QD (1X1)
     Route: 065
     Dates: start: 201805

REACTIONS (4)
  - Dandy-Walker syndrome [Unknown]
  - Hydrocephalus [Unknown]
  - Disorientation [Unknown]
  - Ataxia [Unknown]
